FAERS Safety Report 6998439-3 (Version None)
Quarter: 2010Q3

REPORT INFORMATION
  Report Type: 
  Country: None (occurrence: None)
  Receive Date: 20100920
  Receipt Date: 20100908
  Transmission Date: 20110219
  Serious: Yes (Other)
  Sender: FDA-Public Use
  Company Number: FR-JNJFOC-20100701347

PATIENT
  Age: 38 Year
  Sex: Female
  Weight: 69 kg

DRUGS (7)
  1. REMICADE [Suspect]
     Indication: SPONDYLOARTHROPATHY
     Route: 042
  2. REMICADE [Suspect]
     Route: 042
  3. REMICADE [Suspect]
     Route: 042
  4. REMICADE [Suspect]
     Route: 042
  5. METOJECT [Concomitant]
     Indication: ANKYLOSING SPONDYLITIS
  6. SPECIAFOLDINE [Concomitant]
     Indication: ANKYLOSING SPONDYLITIS
  7. CORTANCYL [Concomitant]
     Dosage: TEMPORARILY INTERRUPTED BETWEEN THE THIRD AND FOURTH INFUSIONS

REACTIONS (1)
  - MENOMETRORRHAGIA [None]
